FAERS Safety Report 20584302 (Version 1)
Quarter: 2022Q1

REPORT INFORMATION
  Report Type: Spontaneous
  Country: None (occurrence: CA)
  Receive Date: 20220311
  Receipt Date: 20220311
  Transmission Date: 20220423
  Serious: Yes (Other)
  Sender: FDA-Public Use
  Company Number: CA-B.Braun Medical Inc.-2126689

PATIENT
  Age: 71 Year
  Sex: Female

DRUGS (5)
  1. POTASSIUM CHLORIDE [Suspect]
     Active Substance: POTASSIUM CHLORIDE
  2. ASPIRIN [Suspect]
     Active Substance: ASPIRIN
  3. IRON [Suspect]
     Active Substance: IRON
  4. METOLAZONE [Suspect]
     Active Substance: METOLAZONE
  5. UPTRAVI [Suspect]
     Active Substance: SELEXIPAG

REACTIONS (15)
  - Asthenia [Not Recovered/Not Resolved]
  - Diarrhoea [None]
  - Disease progression [None]
  - Dyspnoea exertional [None]
  - Feeding disorder [None]
  - Headache [None]
  - Illness [None]
  - Loss of personal independence in daily activities [None]
  - Malaise [None]
  - Nausea [None]
  - Pain [None]
  - Pulmonary arterial hypertension [None]
  - Rectal tenesmus [None]
  - Tremor [None]
  - Unevaluable event [None]
